FAERS Safety Report 20903490 (Version 3)
Quarter: 2022Q3

REPORT INFORMATION
  Report Type: Spontaneous
  Country: US (occurrence: US)
  Receive Date: 20220602
  Receipt Date: 20220720
  Transmission Date: 20221027
  Serious: Yes (Death, Hospitalization, Other)
  Sender: FDA-Public Use
  Company Number: US-GSKCCFUS-Case-01389489_AE-80143

PATIENT
  Age: 47 Year
  Sex: Female
  Weight: 72.562 kg

DRUGS (5)
  1. KRINTAFEL [Suspect]
     Active Substance: TAFENOQUINE SUCCINATE
     Indication: Babesiosis
     Dosage: 150 MG
     Route: 048
     Dates: start: 20220608, end: 20220615
  2. MALARONE [Concomitant]
     Active Substance: ATOVAQUONE\PROGUANIL HYDROCHLORIDE
     Indication: Product used for unknown indication
     Dosage: 1 DF, BID
     Dates: end: 20220620
  3. RIFABUTIN [Concomitant]
     Active Substance: RIFABUTIN
     Indication: Product used for unknown indication
     Dosage: 1 DF, BID
     Route: 048
     Dates: end: 20220620
  4. PREDNISONE [Concomitant]
     Active Substance: PREDNISONE
     Indication: Inflammation
     Dosage: UNK
  5. PRIMAQUINE [Concomitant]
     Active Substance: PRIMAQUINE
     Indication: Jarisch-Herxheimer reaction
     Dosage: UNK

REACTIONS (13)
  - Haemophagocytic lymphohistiocytosis [Fatal]
  - Respiratory failure [Fatal]
  - Haemolysis [Unknown]
  - Infection [Unknown]
  - Leukoerythroblastosis [Unknown]
  - Procalcitonin increased [Unknown]
  - Serum ferritin increased [Unknown]
  - Blood triglycerides increased [Unknown]
  - Blood lactate dehydrogenase increased [Unknown]
  - Blood fibrinogen decreased [Unknown]
  - Pancytopenia [Unknown]
  - Off label use [Unknown]
  - Drug effective for unapproved indication [Unknown]

NARRATIVE: CASE EVENT DATE: 20220526
